FAERS Safety Report 17081223 (Version 1)
Quarter: 2019Q4

REPORT INFORMATION
  Report Type: Spontaneous
  Country: US (occurrence: US)
  Receive Date: 20191126
  Receipt Date: 20191126
  Transmission Date: 20200122
  Serious: Yes (Hospitalization)
  Sender: FDA-Public Use
  Company Number: None

PATIENT
  Sex: Female

DRUGS (6)
  1. TYLENOL [Concomitant]
     Active Substance: ACETAMINOPHEN
  2. GLEOSTINE [Suspect]
     Active Substance: LOMUSTINE
     Indication: BRAIN NEOPLASM MALIGNANT
     Dosage: ?          OTHER FREQUENCY:ON DAY 1/6CYCLE;?
     Route: 048
     Dates: start: 20190822
  3. DEXTROAMPHET [Concomitant]
  4. FOLIC ACID. [Concomitant]
     Active Substance: FOLIC ACID
  5. TOPIRAMATE. [Concomitant]
     Active Substance: TOPIRAMATE
  6. MATULANE [Concomitant]
     Active Substance: PROCARBAZINE HYDROCHLORIDE

REACTIONS (3)
  - Skin disorder [None]
  - Urticaria [None]
  - Skin induration [None]
